FAERS Safety Report 12179470 (Version 1)
Quarter: 2016Q1

REPORT INFORMATION
  Report Type: Spontaneous
  Country: US (occurrence: None)
  Receive Date: 20160314
  Receipt Date: 20160314
  Transmission Date: 20160526
  Serious: Yes (Other)
  Sender: FDA-Public Use
  Company Number: None

PATIENT
  Age: 63 Year
  Sex: Male
  Weight: 56.7 kg

DRUGS (4)
  1. GABAPENTIN 600 MG [Suspect]
     Active Substance: GABAPENTIN
     Indication: PROCEDURAL PAIN
     Dosage: 1 PILL TWICE DAILY TAKEN BY MOUTH
     Route: 048
  2. ASPIRIN. [Concomitant]
     Active Substance: ASPIRIN
  3. FLUORIDE [Concomitant]
     Active Substance: SODIUM FLUORIDE
  4. ALEVE [Concomitant]
     Active Substance: NAPROXEN SODIUM

REACTIONS (9)
  - Psychomotor skills impaired [None]
  - Asthenia [None]
  - Fatigue [None]
  - Coordination abnormal [None]
  - Speech disorder [None]
  - Contusion [None]
  - Bradyphrenia [None]
  - Dyskinesia [None]
  - Haemorrhage [None]
